FAERS Safety Report 8026085-1 (Version None)
Quarter: 2012Q1

REPORT INFORMATION
  Report Type: 
  Country: None (occurrence: None)
  Receive Date: 20120105
  Receipt Date: 20110526
  Transmission Date: 20120608
  Serious: No
  Sender: FDA-Public Use
  Company Number: US-ABBOTT-11P-163-0729276-00

PATIENT
  Sex: Female
  Weight: 85.352 kg

DRUGS (7)
  1. TOPROL-XL [Concomitant]
     Indication: CARDIAC DISORDER
  2. HYDORCHLOROTHIAZIDE [Concomitant]
     Indication: PRODUCT USED FOR UNKNOWN INDICATION
  3. SYNTHROID [Suspect]
     Dates: start: 20110201, end: 20110501
  4. SYNTHROID [Suspect]
     Dates: start: 20110501
  5. SYNTHROID [Suspect]
     Indication: HORMONE REPLACEMENT THERAPY
     Dates: start: 19910101, end: 20110201
  6. MECLIZINE HCL [Concomitant]
     Indication: DIZZINESS
  7. HYDROCODONE [Concomitant]
     Indication: PAIN

REACTIONS (4)
  - GAIT DISTURBANCE [None]
  - PAIN [None]
  - PALMAR ERYTHEMA [None]
  - MUSCULOSKELETAL DISCOMFORT [None]
